APPROVED DRUG PRODUCT: CALCITRIOL
Active Ingredient: CALCITRIOL
Strength: 0.25MCG
Dosage Form/Route: CAPSULE;ORAL
Application: A076917 | Product #001 | TE Code: AB
Applicant: HIKMA PHARMACEUTICALS USA INC
Approved: Mar 27, 2006 | RLD: No | RS: No | Type: RX